FAERS Safety Report 19686263 (Version 2)
Quarter: 2021Q3

REPORT INFORMATION
  Report Type: Other
  Country: US (occurrence: US)
  Receive Date: 20210811
  Receipt Date: 20210817
  Transmission Date: 20211014
  Serious: Yes (Other)
  Sender: FDA-Public Use
  Company Number: US-ROCHE-2852857

PATIENT
  Age: 66 Year
  Sex: Female
  Weight: 68.1 kg

DRUGS (24)
  1. RITUXAN [Suspect]
     Active Substance: RITUXIMAB
     Indication: NEPHRITIC SYNDROME
  2. RITUXAN [Suspect]
     Active Substance: RITUXIMAB
     Indication: NEPHROTIC SYNDROME
  3. ATORVASTATIN [Concomitant]
     Active Substance: ATORVASTATIN
     Dates: start: 20141023
  4. AVAPRO [Concomitant]
     Active Substance: IRBESARTAN
     Indication: BLOOD PRESSURE MEASUREMENT
     Route: 048
  5. PREDNISONE. [Concomitant]
     Active Substance: PREDNISONE
     Route: 065
     Dates: start: 20210530, end: 20210613
  6. BUDESONIDE. [Concomitant]
     Active Substance: BUDESONIDE
     Indication: SINUS OPERATION
     Dosage: LIQUID THAT IS IN A VIAL; TWIST THE TOP AND I PUT IT IN A SPRAY BOTTLE AND SPRAY INTO BOTH NOSTRILS
     Route: 045
  7. RITUXAN [Suspect]
     Active Substance: RITUXIMAB
     Indication: PRODUCT USED FOR UNKNOWN INDICATION
     Route: 065
     Dates: start: 20210714
  8. COVID?19 VACCINE [Concomitant]
     Route: 065
     Dates: start: 20210302
  9. LIPITOR [Concomitant]
     Active Substance: ATORVASTATIN CALCIUM
     Indication: BLOOD CHOLESTEROL
     Route: 048
  10. BABY ASPIRIN [Concomitant]
     Active Substance: ASPIRIN
     Route: 048
     Dates: start: 2014
  11. ADVAIR HFA [Concomitant]
     Active Substance: FLUTICASONE PROPIONATE\SALMETEROL XINAFOATE
     Indication: ASTHMA
     Dosage: DOSE IS 250/50; INHALE ONE PUFF IN MORNING AND AT NIGHT
     Route: 055
  12. DIFLUCAN [Concomitant]
     Active Substance: FLUCONAZOLE
     Indication: FUNGAL INFECTION
     Dosage: ONE TIME PILL
     Route: 048
     Dates: start: 20210708
  13. ATORVASTATIN [Concomitant]
     Active Substance: ATORVASTATIN
     Dates: start: 20141023
  14. RITUXAN [Suspect]
     Active Substance: RITUXIMAB
     Indication: GLOMERULONEPHRITIS MEMBRANOUS
     Dosage: ON DAY 1 AND DAY 15
     Route: 042
  15. CIPROFLOXACIN. [Suspect]
     Active Substance: CIPROFLOXACIN
     Indication: PRODUCT USED FOR UNKNOWN INDICATION
     Dosage: ONLY TOOK FOR 6 DAYS
     Route: 048
     Dates: start: 20210701, end: 20210707
  16. TYLENOL [Concomitant]
     Active Substance: ACETAMINOPHEN
     Indication: HEADACHE
     Route: 048
  17. IRBESARTAN. [Concomitant]
     Active Substance: IRBESARTAN
     Dates: start: 20141126
  18. FUROSEMIDE. [Concomitant]
     Active Substance: FUROSEMIDE
     Dates: start: 20201214
  19. SYNTHROID [Concomitant]
     Active Substance: LEVOTHYROXINE SODIUM
     Dosage: MONDAY TO FRIDAY TAKES 150MG; SATURDAY AND SUNDAY TAKES 200MG
     Route: 065
  20. RITUXAN [Suspect]
     Active Substance: RITUXIMAB
     Indication: GLOMERULONEPHRITIS MEMBRANOUS
  21. RITUXAN [Suspect]
     Active Substance: RITUXIMAB
     Indication: GLOMERULONEPHROPATHY
  22. RITUXAN [Suspect]
     Active Substance: RITUXIMAB
     Indication: NEPHROPATHY
     Dosage: AFTER NEXT INFUSION 30?JUN?2021 ;ONGOING: YES?100 DROPS AND 150 DROPS WERE BOTH INFUSION RATES NOTED
     Route: 042
     Dates: start: 20210616
  23. COVID?19 VACCINE [Concomitant]
     Route: 065
     Dates: start: 20210330
  24. FRUSEMIDE [Concomitant]
     Active Substance: FUROSEMIDE
     Dates: start: 20201214

REACTIONS (9)
  - Vision blurred [Recovered/Resolved]
  - Off label use [Unknown]
  - Gastroenteritis salmonella [Recovered/Resolved]
  - Blood pressure increased [Recovered/Resolved]
  - Headache [Recovered/Resolved with Sequelae]
  - Drug hypersensitivity [Recovering/Resolving]
  - Fungal infection [Recovered/Resolved]
  - Dyspnoea [Recovered/Resolved]
  - Peripheral swelling [Not Recovered/Not Resolved]

NARRATIVE: CASE EVENT DATE: 20210616
